FAERS Safety Report 8027943-4 (Version None)
Quarter: 2012Q1

REPORT INFORMATION
  Report Type: 
  Country: None (occurrence: None)
  Receive Date: 20120106
  Receipt Date: 20120104
  Transmission Date: 20120608
  Serious: No
  Sender: FDA-Public Use
  Company Number: US-B.I. PHARMACEUTICALS,INC./RIDGEFIELD-2012-BP-00218BP

PATIENT
  Age: 87 Year
  Sex: Female

DRUGS (3)
  1. METOPROLOL SUCCINATE [Concomitant]
     Indication: ATRIAL FIBRILLATION
  2. PRADAXA [Suspect]
     Indication: ATRIAL FIBRILLATION
     Dates: start: 20111205
  3. GLAUCOMA EYE DROPS [Concomitant]
     Indication: GLAUCOMA

REACTIONS (3)
  - JOINT SWELLING [None]
  - URINARY INCONTINENCE [None]
  - OEDEMA PERIPHERAL [None]
